FAERS Safety Report 5697916-5 (Version None)
Quarter: 2008Q2

REPORT INFORMATION
  Report Type: 
  Country: None (occurrence: None)
  Receive Date: 20080408
  Receipt Date: 20080401
  Transmission Date: 20081010
  Serious: Yes (Death, Hospitalization)
  Sender: FDA-Public Use
  Company Number: NL-ROCHE-555164

PATIENT
  Sex: Male

DRUGS (13)
  1. CAPECITABINE [Suspect]
     Indication: COLORECTAL CANCER
     Dosage: 1000 MG/M2 GIVEN TWICE DAILY ON DAYS 1-14 OF 21 DAY CYCLE AS PER PROTOCOL.
     Route: 048
     Dates: start: 20071109, end: 20071204
  2. BEVACIZUMAB [Suspect]
     Indication: COLORECTAL CANCER
     Dosage: 7.5 MG/KG GIVEN  ON DAY 1 OF 21 DAY CYCLE.
     Route: 042
     Dates: start: 20071109, end: 20071109
  3. IRINOTECAN HCL [Suspect]
     Indication: COLORECTAL CANCER
     Route: 065
  4. PARACETAMOL [Concomitant]
     Dosage: TDD REPORTED AS 4 X 1 GM.
  5. DICLOFENAC SODIUM [Concomitant]
     Dosage: TDD REPORTED AS 3 X 50 MG
  6. GLIMEPIRIDE [Concomitant]
     Dosage: TDD REPORTED AS 1 X 1 MG
  7. METOCLOPRAMIDE [Concomitant]
     Dosage: TDD REPORTED AS 3 X 10 MG.
  8. NEXIUM [Concomitant]
     Dosage: TDD REPORTED AS 1 X 10 MG.
  9. CELIPROLOL [Concomitant]
     Dosage: TDD REPORTED AS 1 X 200 MG.
  10. MOVICOLON [Concomitant]
     Dosage: TDD REPORTED AS 3 X 1 SACHET.
  11. MOVICOLON [Concomitant]
     Dosage: TDD REPORTED AS 3 X 1 SACHET.
  12. ASCALCIN [Concomitant]
     Dosage: TDD REPORTED AS 1 X 10 MG. DRUG NAME REPORTED AS ^ASCAL CARECLIN^
  13. ASCALCIN [Concomitant]
     Dosage: TDD REPORTED AS 1 X 10 MG. DRUG NAME REPORTED AS ^ASCAL CARECLIN^

REACTIONS (3)
  - INTESTINAL OBSTRUCTION [None]
  - NEOPLASM PROGRESSION [None]
  - NEUTROPENIC SEPSIS [None]
